FAERS Safety Report 6863195-6 (Version None)
Quarter: 2010Q3

REPORT INFORMATION
  Report Type: 
  Country: None (occurrence: None)
  Receive Date: 20100701
  Receipt Date: 20100621
  Transmission Date: 20110219
  Serious: Yes (Hospitalization)
  Sender: FDA-Public Use
  Company Number: 20100621CINRY1523

PATIENT
  Age: 8 Year
  Sex: Male

DRUGS (4)
  1. CINRYZE [Suspect]
     Indication: HEREDITARY ANGIOEDEMA
     Dosage: (1000 UNIT, 2 IN 1  WK), INTRAVENOUS
     Route: 042
     Dates: start: 20091001
  2. CINRYZE [Suspect]
     Indication: PROPHYLAXIS
     Dosage: (1000 UNIT, 2 IN 1  WK), INTRAVENOUS
     Route: 042
     Dates: start: 20091001
  3. LORATADINE [Concomitant]
  4. FLUTICASONE PROPIONATE [Concomitant]

REACTIONS (6)
  - AGGRESSION [None]
  - CONFUSIONAL STATE [None]
  - EYE ROLLING [None]
  - FALL [None]
  - INFUSION RELATED REACTION [None]
  - SYNCOPE [None]
